FAERS Safety Report 8036854-X (Version None)
Quarter: 2012Q1

REPORT INFORMATION
  Report Type: 
  Country: None (occurrence: None)
  Receive Date: 20120111
  Receipt Date: 20120105
  Transmission Date: 20120608
  Serious: No
  Sender: FDA-Public Use
  Company Number: US-PFIZER INC-2012004836

PATIENT
  Sex: Male
  Weight: 81.633 kg

DRUGS (9)
  1. FUROSEMIDE [Concomitant]
     Dosage: 20 MG, DAILY
  2. ATORVASTATIN CALCIUM [Concomitant]
     Indication: BLOOD CHOLESTEROL ABNORMAL
     Dosage: 20 MG, DAILY
  3. AVODART [Concomitant]
     Dosage: 5 MG, DAILY
  4. VIAGRA [Suspect]
     Dosage: 50 MG, UNK
     Route: 048
  5. VIAGRA [Suspect]
     Indication: ERECTILE DYSFUNCTION
     Dosage: UNK, AS NEEDED
     Route: 048
  6. ASPIRIN [Concomitant]
     Dosage: 25 MG, DAILY
  7. SINGULAIR [Concomitant]
     Indication: ASTHMA
     Dosage: 10 MG, DAILY
  8. OMEPRAZOLE [Concomitant]
     Dosage: 20 MG, DAILY
  9. METOPROLOL SUCCINATE [Concomitant]
     Indication: HYPERTENSION
     Dosage: 20 MG, DAILY

REACTIONS (1)
  - ERECTILE DYSFUNCTION [None]
